FAERS Safety Report 7402697-0 (Version None)
Quarter: 2011Q1

REPORT INFORMATION
  Report Type: 
  Country: None (occurrence: None)
  Receive Date: 20110329
  Receipt Date: 20110311
  Transmission Date: 20110831
  Serious: Yes (Other)
  Sender: FDA-Public Use
  Company Number: JPI-P-014202

PATIENT
  Age: 42 Year
  Sex: Female

DRUGS (4)
  1. XYREM [Suspect]
     Indication: NARCOLEPSY
     Dosage: 1 GM (0.5 GM,2 IN 1 D),ORAL ; ORAL ; 9 GM (4.5 GM,2 IN 1 D),ORAL
     Route: 048
     Dates: start: 20040907
  2. XYREM [Suspect]
     Indication: FIBROMYALGIA
     Dosage: 1 GM (0.5 GM,2 IN 1 D),ORAL ; ORAL ; 9 GM (4.5 GM,2 IN 1 D),ORAL
     Route: 048
     Dates: start: 20040907
  3. XYREM [Suspect]
     Indication: NARCOLEPSY
     Dosage: 1 GM (0.5 GM,2 IN 1 D),ORAL ; ORAL ; 9 GM (4.5 GM,2 IN 1 D),ORAL
     Route: 048
     Dates: start: 20050117
  4. XYREM [Suspect]
     Indication: FIBROMYALGIA
     Dosage: 1 GM (0.5 GM,2 IN 1 D),ORAL ; ORAL ; 9 GM (4.5 GM,2 IN 1 D),ORAL
     Route: 048
     Dates: start: 20050117

REACTIONS (7)
  - FALL [None]
  - HYPOAESTHESIA [None]
  - UNDERDOSE [None]
  - VOMITING [None]
  - MUSCLE SPASMS [None]
  - DIARRHOEA [None]
  - HAND FRACTURE [None]
